FAERS Safety Report 23203173 (Version 1)
Quarter: 2023Q4

REPORT INFORMATION
  Report Type: Report from Study
  Country: US (occurrence: US)
  Receive Date: 20231120
  Receipt Date: 20231120
  Transmission Date: 20240110
  Serious: Yes (Hospitalization, Other)
  Sender: FDA-Public Use
  Company Number: US-SANDOZ-SDZ2023US022608

PATIENT
  Sex: Male
  Weight: 5.896 kg

DRUGS (3)
  1. TREPROSTINIL [Suspect]
     Active Substance: TREPROSTINIL
     Indication: Pulmonary arterial hypertension
     Dosage: 11.2 NG/KG/MIN, CONTINUOUS
     Route: 058
     Dates: start: 20230714
  2. TREPROSTINIL [Suspect]
     Active Substance: TREPROSTINIL
     Dosage: 11.2 NG/KG/MIN, CONTINUOUS
     Route: 058
     Dates: start: 20230714
  3. SILDENAFIL CITRATE [Concomitant]
     Active Substance: SILDENAFIL CITRATE
     Indication: Product used for unknown indication
     Dosage: UNK
     Route: 065

REACTIONS (2)
  - Hospitalisation [Unknown]
  - Cardiac ablation [Unknown]
